FAERS Safety Report 12885189 (Version 3)
Quarter: 2016Q4

REPORT INFORMATION
  Report Type: Report from Study
  Country: GB (occurrence: GB)
  Receive Date: 20161026
  Receipt Date: 20161226
  Transmission Date: 20170207
  Serious: Yes (Other)
  Sender: FDA-Public Use
  Company Number: PHFR2016GB008471

PATIENT
  Sex: Female

DRUGS (5)
  1. GILENYA [Suspect]
     Active Substance: FINGOLIMOD HYDROCHLORIDE
     Indication: RELAPSING-REMITTING MULTIPLE SCLEROSIS
     Dosage: 0.5 MG, UNK
     Route: 048
     Dates: start: 201302
  2. PREGABALIN. [Suspect]
     Active Substance: PREGABALIN
     Indication: PRODUCT USED FOR UNKNOWN INDICATION
     Dosage: 500 MG, QD
     Route: 065
  3. RAMIPRIL. [Concomitant]
     Active Substance: RAMIPRIL
     Indication: PRODUCT USED FOR UNKNOWN INDICATION
     Route: 065
  4. LACOSAMIDE. [Suspect]
     Active Substance: LACOSAMIDE
     Indication: PRODUCT USED FOR UNKNOWN INDICATION
     Dosage: 200 MG, QD
     Route: 065
  5. ROPINIROLE. [Concomitant]
     Active Substance: ROPINIROLE
     Indication: PRODUCT USED FOR UNKNOWN INDICATION
     Route: 065

REACTIONS (21)
  - Photopsia [Unknown]
  - Neuralgia [Unknown]
  - Hypoaesthesia [Unknown]
  - Mental impairment [Unknown]
  - Pain [Unknown]
  - Saccadic eye movement [Unknown]
  - Dysarthria [Unknown]
  - Mobility decreased [Unknown]
  - Multiple sclerosis relapse [Unknown]
  - Ophthalmoplegia [Unknown]
  - Multiple sclerosis [Unknown]
  - Athetosis [Unknown]
  - Vertigo [Unknown]
  - Oscillopsia [Unknown]
  - Muscular weakness [Unknown]
  - Nasopharyngitis [Unknown]
  - Dizziness [Unknown]
  - Depression [Unknown]
  - Pain in extremity [Unknown]
  - Malaise [Unknown]
  - Fatigue [Unknown]
